FAERS Safety Report 25091126 (Version 1)
Quarter: 2025Q1

REPORT INFORMATION
  Report Type: Spontaneous
  Country: US (occurrence: US)
  Receive Date: 20250318
  Receipt Date: 20250318
  Transmission Date: 20250409
  Serious: Yes (Congenital Anomaly, Other)
  Sender: PURDUE
  Company Number: US-NAPPMUNDI-GBR-2025-0124192

PATIENT

DRUGS (1)
  1. BUPRENORPHINE [Suspect]
     Active Substance: BUPRENORPHINE
     Indication: Foetal exposure during pregnancy
     Route: 064

REACTIONS (2)
  - Congenital musculoskeletal disorder [Unknown]
  - Foetal exposure during pregnancy [Unknown]
